FAERS Safety Report 11002496 (Version 2)
Quarter: 2015Q2

REPORT INFORMATION
  Report Type: Spontaneous
  Country: FR (occurrence: FR)
  Receive Date: 20150408
  Receipt Date: 20150424
  Transmission Date: 20150821
  Serious: Yes (Life-Threatening, Other)
  Sender: FDA-Public Use
  Company Number: FR-GLAXOSMITHKLINE-FR2015GSK045832

PATIENT
  Age: 57 Year
  Sex: Female

DRUGS (8)
  1. BICNU [Suspect]
     Active Substance: CARMUSTINE
     Indication: NODAL MARGINAL ZONE B-CELL LYMPHOMA
     Dosage: UNK
     Dates: start: 20141128
  2. ALKERAN [Suspect]
     Active Substance: MELPHALAN
     Indication: NODAL MARGINAL ZONE B-CELL LYMPHOMA
     Dosage: UNK
     Dates: start: 20141202
  3. ETOPOSIDE TEVA [Suspect]
     Active Substance: ETOPOSIDE
     Indication: NODAL MARGINAL ZONE B-CELL LYMPHOMA
     Dosage: UNK
     Dates: start: 20141128
  4. ZEVALIN [Suspect]
     Active Substance: IBRITUMOMAB TIUXETAN
     Indication: NODAL MARGINAL ZONE B-CELL LYMPHOMA
     Dosage: UNK
     Dates: start: 20141204
  5. SOLU-MEDROL [Concomitant]
     Active Substance: METHYLPREDNISOLONE SODIUM SUCCINATE
     Indication: PROPHYLAXIS OF NAUSEA AND VOMITING
     Dosage: UNK
  6. ARACYTINE [Suspect]
     Active Substance: CYTARABINE
     Indication: NODAL MARGINAL ZONE B-CELL LYMPHOMA
     Dosage: UNK
     Dates: start: 20141204
  7. KYTRIL [Suspect]
     Active Substance: GRANISETRON HYDROCHLORIDE
     Indication: VOMITING
     Dosage: UNK
     Dates: start: 20141204
  8. EMEND [Concomitant]
     Active Substance: APREPITANT
     Indication: PROPHYLAXIS OF NAUSEA AND VOMITING
     Dosage: UNK

REACTIONS (10)
  - Generalised oedema [Recovered/Resolved]
  - Nausea [Recovered/Resolved]
  - Venoocclusive disease [Unknown]
  - Cholestasis [Recovering/Resolving]
  - Vomiting [Recovered/Resolved]
  - Diarrhoea [Recovered/Resolved]
  - Febrile bone marrow aplasia [Recovered/Resolved]
  - Transaminases increased [Recovered/Resolved]
  - Fluid retention [Recovered/Resolved]
  - Stomatitis [Recovered/Resolved]

NARRATIVE: CASE EVENT DATE: 20141206
